FAERS Safety Report 13924099 (Version 3)
Quarter: 2017Q4

REPORT INFORMATION
  Report Type: Spontaneous
  Country: US (occurrence: US)
  Receive Date: 20170831
  Receipt Date: 20171010
  Transmission Date: 20180320
  Serious: Yes (Life-Threatening, Hospitalization, Other)
  Sender: FDA-Public Use
  Company Number: US-CIPLA LTD.-2017US15121

PATIENT

DRUGS (5)
  1. CARVEDILOL. [Concomitant]
     Active Substance: CARVEDILOL
     Indication: HYPERTENSION
     Dosage: UNK
     Route: 065
  2. LISINOPRIL. [Suspect]
     Active Substance: LISINOPRIL
     Indication: HYPERTENSION
     Dosage: UNK
     Route: 065
  3. ISOSORBIDE MONO-NITRATE [Concomitant]
     Active Substance: ISOSORBIDE MONONITRATE
     Indication: HYPERTENSION
     Dosage: UNK
     Route: 065
  4. TISSUE PLASMINOGEN ACTIVATOR [Suspect]
     Active Substance: ALTEPLASE
     Dosage: UNK, 90% OF DOSE OF 90 MG WAS ADMINISTERED
  5. TISSUE PLASMINOGEN ACTIVATOR [Suspect]
     Active Substance: ALTEPLASE
     Indication: CEREBRAL ARTERIOSCLEROSIS
     Dosage: UNK, 10% OF DOSE OF 90 MG WAS ADMINISTERED
     Route: 040

REACTIONS (1)
  - Angioedema [Recovered/Resolved]
